FAERS Safety Report 6966066-X (Version None)
Quarter: 2010Q3

REPORT INFORMATION
  Report Type: 
  Country: None (occurrence: None)
  Receive Date: 20100903
  Receipt Date: 20100728
  Transmission Date: 20110219
  Serious: No
  Sender: FDA-Public Use
  Company Number: A0872749A

PATIENT
  Age: 61 Year
  Sex: Male

DRUGS (8)
  1. LAMICTAL [Suspect]
     Indication: BIPOLAR DISORDER
     Dosage: 25MG PER DAY
     Route: 048
     Dates: start: 20100721
  2. LAMOTRIGINE [Suspect]
     Indication: BIPOLAR DISORDER
     Dosage: 25MG PER DAY
     Route: 048
     Dates: start: 20100719
  3. SEROQUEL [Concomitant]
  4. XANAX XR [Concomitant]
  5. UNKNOWN MEDICATION [Concomitant]
  6. CO Q10 [Concomitant]
  7. RESPERIDOL [Concomitant]
  8. VIT. D [Concomitant]

REACTIONS (5)
  - HYPERSENSITIVITY [None]
  - PARAESTHESIA [None]
  - RASH [None]
  - RASH PAPULAR [None]
  - SCAB [None]
